FAERS Safety Report 4270054-4 (Version None)
Quarter: 2004Q1

REPORT INFORMATION
  Report Type: 
  Country: None (occurrence: None)
  Receive Date: 20040114
  Receipt Date: 20030127
  Transmission Date: 20041129
  Serious: No
  Sender: FDA-Public Use
  Company Number: US-GLAXOSMITHKLINE-A0394011A

PATIENT
  Age: 30 Year
  Sex: Female

DRUGS (4)
  1. WELLBUTRIN [Suspect]
     Indication: ANXIETY
     Route: 048
  2. ZOLOFT [Concomitant]
  3. XANAX [Concomitant]
  4. NICOTINE [Concomitant]

REACTIONS (3)
  - ANXIETY [None]
  - FORMICATION [None]
  - PANIC ATTACK [None]
